FAERS Safety Report 23775000 (Version 1)
Quarter: 2024Q2

REPORT INFORMATION
  Report Type: Spontaneous
  Country: RU (occurrence: None)
  Receive Date: 20240423
  Receipt Date: 20240423
  Transmission Date: 20240716
  Serious: Yes (Life-Threatening, Hospitalization)
  Sender: FDA-Public Use
  Company Number: 2024A095428

PATIENT
  Age: 15 Month
  Sex: Female
  Weight: 7.8 kg

DRUGS (3)
  1. PULMICORT TURBUHALER [Suspect]
     Active Substance: BUDESONIDE
     Indication: Pneumonia
     Route: 055
  2. AMBROXOL [Concomitant]
     Active Substance: AMBROXOL
  3. FENOTEROL HYDROBROMIDE\IPRATROPIUM BROMIDE [Concomitant]
     Active Substance: FENOTEROL HYDROBROMIDE\IPRATROPIUM BROMIDE

REACTIONS (8)
  - Respiratory failure [Unknown]
  - Poisoning [Unknown]
  - Condition aggravated [Unknown]
  - Bronchial obstruction [Unknown]
  - Cardiovascular disorder [Unknown]
  - Laboratory test abnormal [Unknown]
  - Pericarditis [Unknown]
  - Off label use [Unknown]
